FAERS Safety Report 8609108-8 (Version None)
Quarter: 2012Q3

REPORT INFORMATION
  Report Type: 
  Country: None (occurrence: None)
  Receive Date: 20120821
  Receipt Date: 20120810
  Transmission Date: 20120928
  Serious: Yes (Hospitalization, Disabling, Other)
  Sender: FDA-Public Use
  Company Number: US-ELI_LILLY_AND_COMPANY-US200703004408

PATIENT
  Sex: Male
  Weight: 94.331 kg

DRUGS (3)
  1. ZYPREXA [Suspect]
     Indication: SCHIZOPHRENIA
     Dosage: 10 MG, EACH EVENING
     Dates: start: 19990401
  2. ZYPREXA [Suspect]
     Dosage: 5 MG, UNK
  3. TRANXENE [Concomitant]

REACTIONS (18)
  - GAIT DISTURBANCE [None]
  - BLOOD TRIGLYCERIDES INCREASED [None]
  - MENTAL DISORDER [None]
  - NEUROPATHY PERIPHERAL [None]
  - DRUG INEFFECTIVE [None]
  - SCOLIOSIS [None]
  - DIABETIC KETOACIDOSIS [None]
  - RESTLESS LEGS SYNDROME [None]
  - BLOOD CHOLESTEROL INCREASED [None]
  - FEELING ABNORMAL [None]
  - ADVERSE EVENT [None]
  - ERECTILE DYSFUNCTION [None]
  - INCREASED APPETITE [None]
  - PAIN [None]
  - WEIGHT INCREASED [None]
  - TOOTH LOSS [None]
  - BLOOD GLUCOSE INCREASED [None]
  - GLUCOSE TOLERANCE IMPAIRED [None]
